FAERS Safety Report 5710949-5 (Version None)
Quarter: 2008Q2

REPORT INFORMATION
  Report Type: 
  Country: None (occurrence: None)
  Receive Date: 20080421
  Receipt Date: 20080411
  Transmission Date: 20081010
  Serious: Yes (Hospitalization)
  Sender: FDA-Public Use
  Company Number: PHNU2008DE01528

PATIENT
  Age: 48 Year
  Sex: Male

DRUGS (4)
  1. CLOZAPINE [Suspect]
     Indication: MOOD ALTERED
     Dosage: 50 MG/DAY
     Route: 048
     Dates: start: 20010101
  2. CLOZAPINE [Suspect]
     Dosage: 150 MG/DAY
     Route: 048
     Dates: start: 20020101, end: 20020101
  3. HALOPERIDOL [Concomitant]
     Dosage: 300 MG/DAY
     Route: 048
  4. ALLOPURINOL [Concomitant]
     Dosage: 300 MG/DAY
     Route: 048
     Dates: start: 20020101

REACTIONS (2)
  - DIALYSIS [None]
  - RENAL FAILURE ACUTE [None]
